FAERS Safety Report 5465293-0 (Version None)
Quarter: 2007Q3

REPORT INFORMATION
  Report Type: 
  Country: None (occurrence: None)
  Receive Date: 20070919
  Receipt Date: 20070919
  Transmission Date: 20080115
  Serious: Yes (Death)
  Sender: FDA-Public Use
  Company Number: None

PATIENT

DRUGS (2)
  1. OXALIPLATIN [Suspect]
     Indication: NON-HODGKIN'S LYMPHOMA
     Dosage: 130 MG/M2 IV Q21DAYS
     Route: 042
     Dates: start: 20070129, end: 20070313
  2. CYTOSINE ARABINOSIDE [Suspect]
     Dosage: 2000MG/M2 IV Q21DAYS
     Route: 042
     Dates: start: 20070129, end: 20070315

REACTIONS (2)
  - GENERAL PHYSICAL HEALTH DETERIORATION [None]
  - SUBDURAL HAEMORRHAGE [None]
